FAERS Safety Report 11266937 (Version 1)
Quarter: 2015Q3

REPORT INFORMATION
  Report Type: Spontaneous
  Country: US (occurrence: US)
  Receive Date: 20150713
  Receipt Date: 20150713
  Transmission Date: 20151125
  Serious: No
  Sender: FDA-Public Use
  Company Number: US-ASTRAZENECA-2015SE64237

PATIENT
  Age: 1015 Month
  Sex: Male
  Weight: 93.4 kg

DRUGS (25)
  1. QUETIPINE FUMARATE [Suspect]
     Active Substance: QUETIAPINE FUMARATE
     Indication: DEMENTIA ALZHEIMER^S TYPE
     Route: 048
     Dates: start: 201503, end: 201504
  2. QUETIPINE FUMARATE [Suspect]
     Active Substance: QUETIAPINE FUMARATE
     Indication: AGGRESSION
     Route: 048
     Dates: start: 201503, end: 201504
  3. QUETIPINE FUMARATE [Suspect]
     Active Substance: QUETIAPINE FUMARATE
     Indication: DEMENTIA ALZHEIMER^S TYPE
     Route: 048
     Dates: start: 201504, end: 20150626
  4. QUETIPINE FUMARATE [Suspect]
     Active Substance: QUETIAPINE FUMARATE
     Indication: PSYCHOTIC DISORDER
     Route: 048
     Dates: start: 201504, end: 20150626
  5. FUROSEMIDE. [Concomitant]
     Active Substance: FUROSEMIDE
     Indication: DIURETIC THERAPY
     Route: 048
  6. CLONAZEPAM. [Concomitant]
     Active Substance: CLONAZEPAM
     Indication: PSYCHOTIC DISORDER
     Dosage: THREE TIMES A DAY
     Route: 048
     Dates: start: 201501
  7. QUETIPINE FUMARATE [Suspect]
     Active Substance: QUETIAPINE FUMARATE
     Indication: DEMENTIA
     Route: 048
     Dates: start: 201503, end: 201504
  8. QUETIPINE FUMARATE [Suspect]
     Active Substance: QUETIAPINE FUMARATE
     Indication: DEMENTIA
     Route: 048
     Dates: start: 201504, end: 20150626
  9. RISPERDONE [Concomitant]
     Active Substance: RISPERIDONE
     Indication: AGGRESSION
     Route: 048
     Dates: start: 20150627
  10. ATORVASTATIN [Concomitant]
     Active Substance: ATORVASTATIN
     Indication: HYPERTENSION
     Route: 048
  11. CLONAZEPAM. [Concomitant]
     Active Substance: CLONAZEPAM
     Indication: DEMENTIA ALZHEIMER^S TYPE
     Dosage: THREE TIMES A DAY
     Route: 048
     Dates: start: 201501
  12. RISPERDONE [Concomitant]
     Active Substance: RISPERIDONE
     Indication: DEMENTIA ALZHEIMER^S TYPE
     Route: 048
     Dates: start: 20150627
  13. METOPROLOL TARTRATE. [Concomitant]
     Active Substance: METOPROLOL TARTRATE
     Indication: LOW CARDIAC OUTPUT SYNDROME
     Route: 048
  14. RISPERDONE [Concomitant]
     Active Substance: RISPERIDONE
     Indication: DEMENTIA
     Route: 048
     Dates: start: 20150627
  15. BENAZEPRIL [Concomitant]
     Active Substance: BENAZEPRIL HYDROCHLORIDE
     Indication: LOW CARDIAC OUTPUT SYNDROME
     Route: 048
  16. CLONAZEPAM. [Concomitant]
     Active Substance: CLONAZEPAM
     Indication: DEMENTIA
     Dosage: THREE TIMES A DAY
     Route: 048
     Dates: start: 201501
  17. HUMALOG [Concomitant]
     Active Substance: INSULIN LISPRO
     Indication: DIABETES MELLITUS
     Route: 058
  18. ISOSORBIDE. [Concomitant]
     Active Substance: ISOSORBIDE
     Route: 048
  19. AGGRENOX [Concomitant]
     Active Substance: ASPIRIN\DIPYRIDAMOLE
     Route: 048
  20. ASPIRIN. [Concomitant]
     Active Substance: ASPIRIN
     Indication: PROPHYLAXIS
     Route: 048
  21. QUETIPINE FUMARATE [Suspect]
     Active Substance: QUETIAPINE FUMARATE
     Indication: PSYCHOTIC DISORDER
     Route: 048
     Dates: start: 201503, end: 201504
  22. QUETIPINE FUMARATE [Suspect]
     Active Substance: QUETIAPINE FUMARATE
     Indication: AGGRESSION
     Route: 048
     Dates: start: 201504, end: 20150626
  23. RISPERDONE [Concomitant]
     Active Substance: RISPERIDONE
     Indication: PSYCHOTIC DISORDER
     Route: 048
     Dates: start: 20150627
  24. LEVEMIR [Concomitant]
     Active Substance: INSULIN DETEMIR
     Indication: DIABETES MELLITUS
     Route: 058
  25. CLONAZEPAM. [Concomitant]
     Active Substance: CLONAZEPAM
     Indication: AGGRESSION
     Dosage: THREE TIMES A DAY
     Route: 048
     Dates: start: 201501

REACTIONS (6)
  - Feeling abnormal [Unknown]
  - Drug dose omission [Unknown]
  - Off label use [Unknown]
  - Sleep disorder [Unknown]
  - Aggression [Unknown]
  - Intentional product misuse [Unknown]

NARRATIVE: CASE EVENT DATE: 201503
